FAERS Safety Report 10395753 (Version 4)
Quarter: 2014Q4

REPORT INFORMATION
  Report Type: Report from Study
  Country: JP (occurrence: JP)
  Receive Date: 20140820
  Receipt Date: 20141106
  Transmission Date: 20150528
  Serious: Yes (Other)
  Sender: FDA-Public Use
  Company Number: JP-JNJFOC-20140816126

PATIENT
  Age: 69 Year
  Sex: Male
  Weight: 66 kg

DRUGS (11)
  1. CALONAL [Concomitant]
     Active Substance: ACETAMINOPHEN
     Indication: BRONCHITIS
     Dosage: AS NECESSARY
     Route: 048
     Dates: start: 20140527, end: 20140603
  2. CEFZON [Concomitant]
     Active Substance: CEFDINIR
     Indication: BRONCHITIS
     Route: 048
     Dates: start: 20140603, end: 20140610
  3. ASTOMIN [Concomitant]
     Active Substance: DIMEMORFAN
     Indication: BRONCHITIS
     Route: 048
     Dates: start: 20140603, end: 20140624
  4. MUCOSOLVAN [Concomitant]
     Active Substance: AMBROXOL\CLENBUTEROL
     Indication: BRONCHITIS
     Route: 048
     Dates: start: 20140603, end: 20140624
  5. PEGASYS [Suspect]
     Active Substance: PEGINTERFERON ALFA-2A
     Indication: CHRONIC HEPATITIS C
     Route: 058
     Dates: start: 20140527, end: 20140617
  6. DOGMATYL [Concomitant]
     Active Substance: SULPIRIDE
     Indication: PROPHYLAXIS
     Route: 048
     Dates: start: 20140722, end: 20140812
  7. PEGASYS [Suspect]
     Active Substance: PEGINTERFERON ALFA-2A
     Indication: CHRONIC HEPATITIS C
     Route: 058
     Dates: start: 20140624, end: 20140805
  8. MYSLEE [Concomitant]
     Active Substance: ZOLPIDEM TARTRATE
     Indication: PROPHYLAXIS
     Route: 048
     Dates: start: 20140624, end: 20140812
  9. SOVRIAD [Suspect]
     Active Substance: SIMEPREVIR
     Indication: CHRONIC HEPATITIS C
     Route: 048
     Dates: start: 20140527, end: 20140812
  10. RIBAVIRIN. [Suspect]
     Active Substance: RIBAVIRIN
     Indication: CHRONIC HEPATITIS C
     Route: 048
     Dates: start: 20140527, end: 20140623
  11. RIBAVIRIN. [Suspect]
     Active Substance: RIBAVIRIN
     Indication: CHRONIC HEPATITIS C
     Route: 048
     Dates: start: 20140624, end: 20140812

REACTIONS (3)
  - Aspartate aminotransferase increased [Recovered/Resolved]
  - Platelet count decreased [Recovered/Resolved]
  - Alanine aminotransferase increased [Recovered/Resolved]

NARRATIVE: CASE EVENT DATE: 20140624
